FAERS Safety Report 8365570-X (Version None)
Quarter: 2012Q2

REPORT INFORMATION
  Report Type: 
  Country: None (occurrence: None)
  Receive Date: 20120516
  Receipt Date: 20120502
  Transmission Date: 20120825
  Serious: Yes (Other)
  Sender: FDA-Public Use
  Company Number: US-ROCHE-1067396

PATIENT
  Sex: Male
  Weight: 90.6 kg

DRUGS (18)
  1. GS 9451 (NS3 PROTEASE INHIBITOR) [Suspect]
     Route: 048
     Dates: start: 20120119, end: 20120313
  2. CELEXA [Concomitant]
     Dates: start: 20120118
  3. METOPROLOL TARTRATE [Concomitant]
     Dates: start: 20040101
  4. SULINDAC [Concomitant]
     Dates: start: 20111218, end: 20120327
  5. PEGASYS [Suspect]
     Indication: HEPATITIS C
     Route: 058
     Dates: start: 20120119, end: 20120309
  6. GS 5885 (HCV NS5A INHIBITOR) [Suspect]
     Indication: HEPATITIS C
     Route: 048
     Dates: start: 20111229, end: 20120118
  7. TYLENOL (CAPLET) [Concomitant]
     Dates: start: 20120113
  8. RANITIDINE [Concomitant]
  9. PEGASYS [Suspect]
     Route: 058
     Dates: start: 20111229, end: 20120118
  10. COPEGUS [Suspect]
     Indication: HEPATITIS C
     Route: 048
     Dates: start: 20120119, end: 20120313
  11. ZITHROMAX [Concomitant]
     Dates: start: 20120221, end: 20120225
  12. ASPIRIN [Concomitant]
     Dates: start: 20040101, end: 20120329
  13. PLACEBO [Suspect]
     Indication: HEPATITIS C
     Route: 048
     Dates: start: 20111229, end: 20120118
  14. GS 9451 (NS3 PROTEASE INHIBITOR) [Suspect]
     Indication: HEPATITIS C
     Route: 048
     Dates: start: 20111229, end: 20120118
  15. CELEXA [Concomitant]
  16. GS 5885 (HCV NS5A INHIBITOR) [Suspect]
     Route: 048
     Dates: start: 20120119, end: 20120313
  17. CODEINE COUGH SYRUP (UNK INGREDIENTS) [Concomitant]
     Dates: start: 20120119, end: 20120215
  18. COPEGUS [Suspect]
     Route: 048
     Dates: start: 20111229, end: 20120118

REACTIONS (3)
  - MUSCULAR WEAKNESS [None]
  - RASH [None]
  - SENSORY DISTURBANCE [None]
